FAERS Safety Report 20360820 (Version 24)
Quarter: 2023Q2

REPORT INFORMATION
  Report Type: Report from Study
  Country: IE (occurrence: IE)
  Receive Date: 20220121
  Receipt Date: 20230415
  Transmission Date: 20230722
  Serious: Yes (Hospitalization)
  Sender: FDA-Public Use
  Company Number: IE-ABBVIE-22K-229-4219321-00

PATIENT
  Age: 62 Year
  Sex: Female

DRUGS (74)
  1. CARBIDOPA\LEVODOPA [Suspect]
     Active Substance: CARBIDOPA\LEVODOPA
     Indication: Parkinson^s disease
     Dosage: MONRING DOSE 5.4ML
     Dates: start: 202203, end: 202203
  2. CARBIDOPA\LEVODOPA [Suspect]
     Active Substance: CARBIDOPA\LEVODOPA
  3. CARBIDOPA\LEVODOPA [Suspect]
     Active Substance: CARBIDOPA\LEVODOPA
     Dosage: CONTINUOUS RATE 2 ML/HR
     Route: 050
     Dates: start: 202202, end: 202202
  4. CARBIDOPA\LEVODOPA [Suspect]
     Active Substance: CARBIDOPA\LEVODOPA
     Dosage: CONTINUOUS DOSE 2.4ML/HR; EXTRA DOSE 0.4ML
     Dates: start: 202204, end: 202204
  5. CARBIDOPA\LEVODOPA [Suspect]
     Active Substance: CARBIDOPA\LEVODOPA
     Dosage: 1 CASSETTE CONTINUOUS
     Route: 050
     Dates: start: 20181002
  6. CARBIDOPA\LEVODOPA [Suspect]
     Active Substance: CARBIDOPA\LEVODOPA
     Dosage: CONTINUOUS RATE 2.6ML/HR; EXTRA DOSE OF 0.1ML
     Dates: start: 20220114, end: 20220114
  7. CARBIDOPA\LEVODOPA [Suspect]
     Active Substance: CARBIDOPA\LEVODOPA
     Dosage: MORNING DOSE 5.2ML
     Route: 050
     Dates: start: 202203, end: 202204
  8. CARBIDOPA\LEVODOPA [Suspect]
     Active Substance: CARBIDOPA\LEVODOPA
     Dosage: MORNING DOSE 5.2ML
     Dates: start: 202203, end: 202204
  9. CARBIDOPA\LEVODOPA [Suspect]
     Active Substance: CARBIDOPA\LEVODOPA
     Dosage: CONTINUOUS RATE 2.6ML/HR?CONTINUOUS
     Route: 050
     Dates: end: 202112
  10. CARBIDOPA\LEVODOPA [Suspect]
     Active Substance: CARBIDOPA\LEVODOPA
     Dosage: MORNING DOSE TO 5.3ML
     Dates: start: 202203, end: 202203
  11. CARBIDOPA\LEVODOPA [Suspect]
     Active Substance: CARBIDOPA\LEVODOPA
     Dosage: CONTINUOUS RATE TO 2.6ML/HR
     Route: 050
     Dates: start: 20220128, end: 202202
  12. CARBIDOPA\LEVODOPA [Suspect]
     Active Substance: CARBIDOPA\LEVODOPA
     Dosage: CONTINUOUS RATE 2 ML/HR
     Dates: start: 202202, end: 202202
  13. CARBIDOPA\LEVODOPA [Suspect]
     Active Substance: CARBIDOPA\LEVODOPA
     Dosage: CONTINUOUS RATE 2.5MLHR?CONTINUOUS
     Route: 050
     Dates: start: 202112
  14. CARBIDOPA\LEVODOPA [Suspect]
     Active Substance: CARBIDOPA\LEVODOPA
     Dosage: CONTINUOUS RATE 2.5ML
     Dates: start: 20220114, end: 202201
  15. CARBIDOPA\LEVODOPA [Suspect]
     Active Substance: CARBIDOPA\LEVODOPA
     Dosage: CONTINUOUS RATE 2.4ML/HR
     Route: 050
     Dates: end: 20220304
  16. CARBIDOPA\LEVODOPA [Suspect]
     Active Substance: CARBIDOPA\LEVODOPA
     Dosage: MORNING DOSE 5.3ML
     Dates: start: 202201, end: 20220114
  17. CARBIDOPA\LEVODOPA [Suspect]
     Active Substance: CARBIDOPA\LEVODOPA
     Dosage: MORNING DOSE 5.3ML
     Route: 050
     Dates: end: 20220114
  18. CARBIDOPA\LEVODOPA [Suspect]
     Active Substance: CARBIDOPA\LEVODOPA
     Dosage: MORNING DOSE 5.2ML
     Dates: end: 202201
  19. CARBIDOPA\LEVODOPA [Suspect]
     Active Substance: CARBIDOPA\LEVODOPA
     Dosage: MORNING DOSE 5.2ML
     Route: 050
     Dates: end: 202201
  20. CARBIDOPA\LEVODOPA [Suspect]
     Active Substance: CARBIDOPA\LEVODOPA
     Dosage: CONTINUOUS RATE 2.6ML/HR
     Dates: end: 202112
  21. CARBIDOPA\LEVODOPA [Suspect]
     Active Substance: CARBIDOPA\LEVODOPA
     Dosage: CONTINUOUS RATE 2.6ML/HR; EXTRA DOSE OF 0.1ML
     Route: 050
     Dates: start: 20220114, end: 20220114
  22. CARBIDOPA\LEVODOPA [Suspect]
     Active Substance: CARBIDOPA\LEVODOPA
     Route: 050
  23. CARBIDOPA\LEVODOPA [Suspect]
     Active Substance: CARBIDOPA\LEVODOPA
     Dosage: CONTINUOUS DOSE TO 2.5ML/HR; EXTRA DOSE OF UP TO TO 0.6ML
     Dates: start: 202204, end: 20220513
  24. CARBIDOPA\LEVODOPA [Suspect]
     Active Substance: CARBIDOPA\LEVODOPA
     Dosage: CONTINUOUS RATE 2.5ML?LAST ADMIN DATE: JAN 2022
     Route: 050
     Dates: start: 20220114
  25. CARBIDOPA\LEVODOPA [Suspect]
     Active Substance: CARBIDOPA\LEVODOPA
     Dosage: CONTINUOUS DOSE 2.3ML/HR;  MORNING DOSE 5.5ML
     Dates: start: 20220304, end: 202203
  26. CARBIDOPA\LEVODOPA [Suspect]
     Active Substance: CARBIDOPA\LEVODOPA
     Dosage: CONTINUOUS DOSE 2.4ML/HR; EXTRA DOSE 0.4ML
     Route: 050
     Dates: start: 202204, end: 202204
  27. CARBIDOPA\LEVODOPA [Suspect]
     Active Substance: CARBIDOPA\LEVODOPA
     Dosage: MORNING DOSE 5.4ML
     Dates: start: 20220513
  28. CARBIDOPA\LEVODOPA [Suspect]
     Active Substance: CARBIDOPA\LEVODOPA
     Dosage: CONTINUOUS RATE 2.3 ML/HR
     Route: 050
     Dates: start: 202202, end: 202202
  29. CARBIDOPA\LEVODOPA [Suspect]
     Active Substance: CARBIDOPA\LEVODOPA
     Dosage: CONTINUOUS RATE 2.4ML/HR; EXTRA DOSE 0.4ML
     Dates: start: 202202, end: 202202
  30. CARBIDOPA\LEVODOPA [Suspect]
     Active Substance: CARBIDOPA\LEVODOPA
     Dosage: CONTINUOUS RATE TO 2.6ML/HR
     Route: 050
     Dates: start: 20220128, end: 202202
  31. CARBIDOPA\LEVODOPA [Suspect]
     Active Substance: CARBIDOPA\LEVODOPA
     Dosage: CONTINUOUS RATE 2.3 ML/HR
     Dates: start: 202202, end: 202202
  32. CARBIDOPA\LEVODOPA [Suspect]
     Active Substance: CARBIDOPA\LEVODOPA
     Dosage: MORNING DOSE 5.4ML
     Route: 050
     Dates: start: 20220513
  33. CARBIDOPA\LEVODOPA [Suspect]
     Active Substance: CARBIDOPA\LEVODOPA
     Dosage: CONTINUOUS RATE 2.3 ML/HR; EXTRA DOSE OF 0.6 ML AS REQUIRED
     Dates: start: 202202
  34. CARBIDOPA\LEVODOPA [Suspect]
     Active Substance: CARBIDOPA\LEVODOPA
     Dosage: CONTINUOUS RATE 2.4ML/ HR
     Route: 050
     Dates: start: 202202, end: 202202
  35. CARBIDOPA\LEVODOPA [Suspect]
     Active Substance: CARBIDOPA\LEVODOPA
     Dosage: CONTINUOUS RATE TO 2.6ML/HR
     Dates: start: 20220128, end: 202202
  36. CARBIDOPA\LEVODOPA [Suspect]
     Active Substance: CARBIDOPA\LEVODOPA
     Dosage: CONTINUOUS DOSE TO 2.5ML/HR; EXTRA DOSE OF UP TO TO 0.6ML
     Route: 050
     Dates: start: 202204, end: 20220513
  37. CARBIDOPA\LEVODOPA [Suspect]
     Active Substance: CARBIDOPA\LEVODOPA
     Dosage: CONTINUOUS RATE 2.4ML/HR
     Dates: start: 2022, end: 20220304
  38. CARBIDOPA\LEVODOPA [Suspect]
     Active Substance: CARBIDOPA\LEVODOPA
     Dosage: CONTINUOUS RATE 2.3 ML/HR
     Route: 050
     Dates: start: 202202, end: 202202
  39. CARBIDOPA\LEVODOPA [Suspect]
     Active Substance: CARBIDOPA\LEVODOPA
     Dosage: 1 CASSETTE
     Dates: start: 20181002
  40. CARBIDOPA\LEVODOPA [Suspect]
     Active Substance: CARBIDOPA\LEVODOPA
     Dosage: CONTINUOUS RATE 2.4ML/HR; EXTRA DOSE 0.4ML
     Route: 050
     Dates: start: 202202, end: 202202
  41. CARBIDOPA\LEVODOPA [Suspect]
     Active Substance: CARBIDOPA\LEVODOPA
     Dosage: CONTINUOUS RATE 2.4ML/ HR
     Dates: start: 202202, end: 202202
  42. CARBIDOPA\LEVODOPA [Suspect]
     Active Substance: CARBIDOPA\LEVODOPA
     Dosage: CONTINUOUS RATE 2 ML/HR
     Route: 050
     Dates: start: 202202, end: 202202
  43. CARBIDOPA\LEVODOPA [Suspect]
     Active Substance: CARBIDOPA\LEVODOPA
     Dosage: CONTINUOUS RATE 2.6ML/HR; EXTRA DOSE OF 0.1ML
     Route: 050
     Dates: start: 20220114, end: 20220114
  44. CARBIDOPA\LEVODOPA [Suspect]
     Active Substance: CARBIDOPA\LEVODOPA
     Dosage: CONTINUOUS RATE 2.4ML/HR; EXTRA DOSE 0.4ML
     Route: 050
     Dates: start: 202202, end: 202202
  45. CARBIDOPA\LEVODOPA [Suspect]
     Active Substance: CARBIDOPA\LEVODOPA
     Dosage: CONTINUOUS RATE 2.3 ML/HR; EXTRA DOSE OF 0.6 ML AS REQUIRED
     Route: 050
     Dates: start: 202202
  46. CARBIDOPA\LEVODOPA [Suspect]
     Active Substance: CARBIDOPA\LEVODOPA
     Dosage: CONTINUOUS RATE 2.3 ML/HR; EXTRA DOSE OF 0.6 ML AS REQUIRED
     Route: 050
     Dates: start: 202202
  47. CARBIDOPA\LEVODOPA [Suspect]
     Active Substance: CARBIDOPA\LEVODOPA
     Dosage: CONTINUOUS RATE 2.6ML/HR
     Route: 050
     Dates: end: 202112
  48. CARBIDOPA\LEVODOPA [Suspect]
     Active Substance: CARBIDOPA\LEVODOPA
     Dosage: CONTINUOUS RATE 2.3 ML/HR; EXTRA DOSE OF 0.6 ML AS REQUIRED?LAST ADMIN DATE: 2022
     Route: 050
     Dates: start: 202202
  49. CARBIDOPA\LEVODOPA [Suspect]
     Active Substance: CARBIDOPA\LEVODOPA
     Dosage: CONTINUOUS RATE 2.4ML/ HR
     Route: 050
     Dates: start: 202202, end: 202202
  50. CARBIDOPA\LEVODOPA [Suspect]
     Active Substance: CARBIDOPA\LEVODOPA
     Dosage: CONTINUOUS RATE 2.4ML/HR; EXTRA DOSE 0.4ML
     Route: 050
     Dates: start: 202202, end: 202202
  51. CARBIDOPA\LEVODOPA [Suspect]
     Active Substance: CARBIDOPA\LEVODOPA
     Dosage: CONTINUOUS DOSE 2.3ML/HR;  MORNING DOSE 5.5ML
     Route: 050
     Dates: start: 20220304, end: 202203
  52. CARBIDOPA\LEVODOPA [Suspect]
     Active Substance: CARBIDOPA\LEVODOPA
     Dosage: CONTINUOUS RATE 2.4ML/HR
     Route: 050
  53. CARBIDOPA\LEVODOPA [Suspect]
     Active Substance: CARBIDOPA\LEVODOPA
     Dosage: MONRING DOSE 5.4ML
     Route: 050
     Dates: start: 202203, end: 202203
  54. CARBIDOPA\LEVODOPA [Suspect]
     Active Substance: CARBIDOPA\LEVODOPA
     Dosage: MORNING DOSE 5.2ML
     Route: 050
     Dates: end: 202201
  55. CARBIDOPA\LEVODOPA [Suspect]
     Active Substance: CARBIDOPA\LEVODOPA
     Dosage: CONTINUOUS RATE 2.5ML
     Route: 050
     Dates: start: 20220114, end: 202201
  56. CARBIDOPA\LEVODOPA [Suspect]
     Active Substance: CARBIDOPA\LEVODOPA
     Dosage: CONTINUOUS DOSE 2.3ML/HR; MORNING DOSE 5.5ML
     Route: 050
     Dates: end: 20220304
  57. CARBIDOPA\LEVODOPA [Suspect]
     Active Substance: CARBIDOPA\LEVODOPA
     Dosage: MORNING DOSE TO 5.3ML
     Route: 050
     Dates: start: 202203, end: 202203
  58. CARBIDOPA\LEVODOPA [Suspect]
     Active Substance: CARBIDOPA\LEVODOPA
     Dosage: CONTINUOUS DOSE 2.3ML/HR;  MORNING DOSE 5.5ML?LAST ADMIN DATE: MAR 2022
     Route: 050
     Dates: start: 20220304
  59. CARBIDOPA\LEVODOPA [Suspect]
     Active Substance: CARBIDOPA\LEVODOPA
     Dosage: CONTINUOUS RATE 2.3 ML/HR
     Route: 050
     Dates: start: 202202, end: 202202
  60. CARBIDOPA\LEVODOPA [Suspect]
     Active Substance: CARBIDOPA\LEVODOPA
     Dosage: MORNING DOSE 5.4 ML, CONTINUOUS
     Route: 050
     Dates: start: 202203, end: 202203
  61. CARBIDOPA\LEVODOPA [Suspect]
     Active Substance: CARBIDOPA\LEVODOPA
     Dosage: MORNING DOSE TO 5.3ML
     Route: 050
     Dates: start: 202203, end: 202203
  62. CARBIDOPA\LEVODOPA [Suspect]
     Active Substance: CARBIDOPA\LEVODOPA
     Dosage: MORNING DOSE 5.2ML
     Route: 050
     Dates: start: 202203, end: 202204
  63. CARBIDOPA\LEVODOPA [Suspect]
     Active Substance: CARBIDOPA\LEVODOPA
     Dosage: CONTINUOUS DOSE 2.4ML/HR; EXTRA DOSE 0.4ML
     Route: 050
     Dates: start: 202204, end: 202204
  64. CARBIDOPA\LEVODOPA [Suspect]
     Active Substance: CARBIDOPA\LEVODOPA
     Dosage: CONTINUOUS DOSE TO 2.5ML/HR; EXTRA DOSE OF UP TO TO 0.6ML
     Route: 050
     Dates: start: 202204, end: 20220513
  65. CARBIDOPA\LEVODOPA [Suspect]
     Active Substance: CARBIDOPA\LEVODOPA
     Dosage: CONTINUOUS RATE 2.5MLHR
     Dates: start: 202112
  66. CARBIDOPA\LEVODOPA [Suspect]
     Active Substance: CARBIDOPA\LEVODOPA
     Dosage: MORNING DOSE 5.4ML
     Route: 050
     Dates: start: 20220513
  67. CITALOPRAM [Concomitant]
     Active Substance: CITALOPRAM HYDROBROMIDE
     Indication: Product used for unknown indication
     Route: 050
  68. MOVICOL [Concomitant]
     Active Substance: POLYETHYLENE GLYCOL 3350\POTASSIUM CHLORIDE\SODIUM BICARBONATE\SODIUM CHLORIDE
     Indication: Product used for unknown indication
     Dosage: 13.8 MG
     Route: 050
  69. MIRABEGRON [Concomitant]
     Active Substance: MIRABEGRON
     Indication: Product used for unknown indication
     Route: 050
  70. SINEMET [Concomitant]
     Active Substance: CARBIDOPA\LEVODOPA
     Indication: Product used for unknown indication
     Dosage: HALF CR
     Route: 050
     Dates: start: 202202, end: 202202
  71. ZOLPIDEM TARTRATE [Concomitant]
     Active Substance: ZOLPIDEM TARTRATE
     Indication: Product used for unknown indication
     Route: 050
  72. DIAZEPAM [Concomitant]
     Active Substance: DIAZEPAM
     Indication: Product used for unknown indication
  73. DIAZEPAM [Concomitant]
     Active Substance: DIAZEPAM
     Indication: Product used for unknown indication
     Route: 050
  74. VENLAFAXINE [Concomitant]
     Active Substance: VENLAFAXINE HYDROCHLORIDE
     Indication: Product used for unknown indication
     Route: 050

REACTIONS (33)
  - General symptom [Recovered/Resolved]
  - Drug intolerance [Recovered/Resolved]
  - Muscle spasms [Recovered/Resolved]
  - Feeling abnormal [Recovered/Resolved]
  - Limb discomfort [Recovered/Resolved]
  - Paraesthesia [Recovered/Resolved]
  - Stoma site discharge [Recovered/Resolved]
  - Device dislocation [Recovered/Resolved]
  - Gait disturbance [Recovered/Resolved]
  - Tremor [Recovered/Resolved]
  - Device connection issue [Recovered/Resolved]
  - Off label use [Recovered/Resolved]
  - Parkinson^s disease [Not Recovered/Not Resolved]
  - Therapeutic product effect incomplete [Recovered/Resolved]
  - Dyskinesia [Recovering/Resolving]
  - On and off phenomenon [Recovered/Resolved]
  - Dyskinesia [Recovered/Resolved]
  - On and off phenomenon [Not Recovered/Not Resolved]
  - Tremor [Recovered/Resolved]
  - Drug tolerance decreased [Recovered/Resolved]
  - Therapeutic product effect delayed [Recovered/Resolved]
  - Device leakage [Recovered/Resolved]
  - Tremor [Recovered/Resolved]
  - Off label use [Recovering/Resolving]
  - Unevaluable event [Recovered/Resolved]
  - Stoma site discharge [Recovered/Resolved]
  - Muscle rigidity [Recovered/Resolved]
  - Mobility decreased [Recovered/Resolved]
  - Device issue [Recovered/Resolved]
  - Pain [Recovered/Resolved]
  - Device occlusion [Recovered/Resolved]
  - Skin abrasion [Recovered/Resolved]
  - Stoma site discharge [Recovered/Resolved]

NARRATIVE: CASE EVENT DATE: 20211225
